FAERS Safety Report 5984814-2 (Version None)
Quarter: 2008Q4

REPORT INFORMATION
  Report Type: 
  Country: None (occurrence: None)
  Receive Date: 20081202
  Receipt Date: 20081121
  Transmission Date: 20090506
  Serious: Yes (Death, Hospitalization)
  Sender: FDA-Public Use
  Company Number: 2008-04177

PATIENT
  Age: 71 Year
  Sex: Male

DRUGS (6)
  1. VELCADE [Suspect]
     Indication: MANTLE CELL LYMPHOMA
     Dosage: 3.4 MG, INTRAVENOUS
     Route: 042
     Dates: start: 20080902, end: 20080906
  2. VELCADE [Suspect]
     Indication: MANTLE CELL LYMPHOMA
     Dosage: 3.4 MG, INTRAVENOUS
     Route: 042
     Dates: start: 20080930, end: 20081003
  3. CYTARABINE [Suspect]
     Indication: MANTLE CELL LYMPHOMA
     Dosage: 2 G, INTRAVENOUS
     Route: 042
     Dates: start: 20080902, end: 20080906
  4. CYTARABINE [Suspect]
     Indication: MANTLE CELL LYMPHOMA
     Dosage: 2 G, INTRAVENOUS
     Route: 042
     Dates: start: 20080930, end: 20081003
  5. MABTHERA [Concomitant]
  6. PRIMPERAN TAB [Concomitant]

REACTIONS (2)
  - ENCEPHALITIS [None]
  - POLYNEUROPATHY [None]
